FAERS Safety Report 4305636-4 (Version None)
Quarter: 2004Q1

REPORT INFORMATION
  Report Type: 
  Country: None (occurrence: None)
  Receive Date: 20040226
  Receipt Date: 20031218
  Transmission Date: 20041129
  Serious: Yes (Hospitalization, Other)
  Sender: FDA-Public Use
  Company Number: US-BRISTOL-MYERS SQUIBB COMPANY-12461349

PATIENT
  Age: 56 Year
  Sex: Female

DRUGS (4)
  1. ABILIFY [Suspect]
     Indication: SCHIZOPHRENIA
     Dosage: 1/2 OF A 10 MG TABLET
     Route: 048
  2. ABILIFY [Suspect]
     Indication: DEPRESSION
     Dosage: 1/2 OF A 10 MG TABLET
     Route: 048
  3. TRAMADOL [Suspect]
     Route: 048
  4. NEURONTIN [Suspect]
     Route: 048

REACTIONS (7)
  - ACIDOSIS [None]
  - CONVULSION [None]
  - DEPRESSED LEVEL OF CONSCIOUSNESS [None]
  - HYPOTENSION [None]
  - OVERDOSE [None]
  - RESPIRATORY DEPRESSION [None]
  - SUICIDE ATTEMPT [None]
